FAERS Safety Report 5511335-3 (Version None)
Quarter: 2007Q4

REPORT INFORMATION
  Report Type: 
  Country: None (occurrence: None)
  Receive Date: 20071109
  Receipt Date: 20070830
  Transmission Date: 20080405
  Serious: No
  Sender: FDA-Public Use
  Company Number: A0677772A

PATIENT
  Sex: Male

DRUGS (1)
  1. ALTABAX [Suspect]
     Dosage: 10MG SINGLE DOSE
     Route: 061

REACTIONS (1)
  - APPLICATION SITE IRRITATION [None]
